FAERS Safety Report 5674999-X (Version None)
Quarter: 2008Q1

REPORT INFORMATION
  Report Type: 
  Country: None (occurrence: None)
  Receive Date: 20080320
  Receipt Date: 20080318
  Transmission Date: 20080703
  Serious: Yes (Life-Threatening, Hospitalization)
  Sender: FDA-Public Use
  Company Number: JP-ASTRAZENECA-2008AP01658

PATIENT
  Age: 65 Year
  Sex: Female

DRUGS (9)
  1. IRESSA [Suspect]
     Indication: NON-SMALL CELL LUNG CANCER
     Route: 048
     Dates: start: 20080205, end: 20080211
  2. IRESSA [Suspect]
     Route: 048
     Dates: start: 20080221, end: 20080301
  3. FRANDOL S [Concomitant]
     Indication: HYPERTENSION
     Route: 062
     Dates: start: 20080205, end: 20080206
  4. RINDERON [Concomitant]
     Indication: WHEEZING
     Route: 042
     Dates: start: 20080208, end: 20080208
  5. RINDERON [Concomitant]
     Route: 042
     Dates: start: 20080209, end: 20080209
  6. RINDERON [Concomitant]
     Route: 042
     Dates: start: 20080210, end: 20080211
  7. NEOPHYLLIN [Concomitant]
     Indication: WHEEZING
     Route: 042
     Dates: start: 20080208, end: 20080208
  8. NEOPHYLLIN [Concomitant]
     Route: 042
     Dates: start: 20080209, end: 20080209
  9. NEOPHYLLIN [Concomitant]
     Route: 042
     Dates: start: 20080210, end: 20080211

REACTIONS (2)
  - PNEUMONIA ASPIRATION [None]
  - PULMONARY OEDEMA [None]
